FAERS Safety Report 22524436 (Version 2)
Quarter: 2023Q2

REPORT INFORMATION
  Report Type: Report from Study
  Country: CN (occurrence: None)
  Receive Date: 20230606
  Receipt Date: 20230619
  Transmission Date: 20230721
  Serious: Yes (Death, Hospitalization)
  Sender: FDA-Public Use
  Company Number: CN-ROCHE-3362336

PATIENT
  Sex: Male
  Weight: 60 kg

DRUGS (5)
  1. Y-101D [Suspect]
     Active Substance: Y-101D
     Indication: Hepatic cancer
     Dosage: DATE OF LAST DOSE BEFORE ONSET OF SAE/AESI: 12-APR-2023?DOSAGE FORM + STRENGTH: 8ML:240MG
     Route: 042
     Dates: start: 20230412
  2. BEVACIZUMAB [Suspect]
     Active Substance: BEVACIZUMAB
     Indication: Hepatic cancer
     Dosage: DATE OF LAST DOSE BEFORE ONSET OF SAE/AESI: 12-APR-2023?DOSAGE FORM + STRENGTH: 4ML:100MG
     Route: 042
     Dates: start: 20230412
  3. ENTECAVIR [Concomitant]
     Active Substance: ENTECAVIR
     Indication: Hepatitis B
     Route: 048
     Dates: start: 2019
  4. INSULIN ASPART [Concomitant]
     Active Substance: INSULIN ASPART
     Indication: Diabetes mellitus
     Dosage: DOSE: 6 U
     Dates: start: 20220215
  5. MORPHINE HYDROCHLORIDE [Concomitant]
     Active Substance: MORPHINE HYDROCHLORIDE
     Indication: Arthralgia
     Route: 048
     Dates: start: 20220803

REACTIONS (1)
  - Hepatic failure [Fatal]

NARRATIVE: CASE EVENT DATE: 20230530
